FAERS Safety Report 5445434-1 (Version None)
Quarter: 2007Q3

REPORT INFORMATION
  Report Type: 
  Country: None (occurrence: None)
  Receive Date: 20070906
  Receipt Date: 20070705
  Transmission Date: 20080115
  Serious: No
  Sender: FDA-Public Use
  Company Number: A0661935A

PATIENT
  Age: 44 Year
  Sex: Female

DRUGS (9)
  1. REQUIP [Suspect]
     Indication: RESTLESS LEGS SYNDROME
     Dosage: .75MG THREE TIMES PER DAY
     Route: 048
     Dates: start: 20070301
  2. GLUCOPHAGE [Concomitant]
  3. LITHIUM CARBONATE [Concomitant]
  4. SINGULAIR [Concomitant]
  5. KLONOPIN [Concomitant]
  6. RESTORIL [Concomitant]
  7. RISPERDAL [Concomitant]
  8. EMSAM [Concomitant]
  9. REQUIP [Concomitant]
     Dosage: 1MG THREE TIMES PER DAY
     Route: 048
     Dates: start: 20060701, end: 20070301

REACTIONS (2)
  - DRUG INEFFECTIVE [None]
  - PAIN IN EXTREMITY [None]
